FAERS Safety Report 24627657 (Version 2)
Quarter: 2025Q1

REPORT INFORMATION
  Report Type: Spontaneous
  Country: FR (occurrence: FR)
  Receive Date: 20241116
  Receipt Date: 20250106
  Transmission Date: 20250409
  Serious: Yes (Other)
  Sender: CELLTRION
  Company Number: None

PATIENT

DRUGS (8)
  1. MVASI [Suspect]
     Active Substance: BEVACIZUMAB-AWWB
     Indication: Lung neoplasm malignant
     Dosage: 25MG/ML
     Route: 042
     Dates: start: 20240124, end: 20240207
  2. BEVACIZUMAB [Suspect]
     Active Substance: BEVACIZUMAB
     Indication: Lung neoplasm malignant
     Dosage: 25MG/ML
     Route: 042
     Dates: start: 20240124, end: 20240207
  3. PACLITAXEL [Suspect]
     Active Substance: PACLITAXEL
     Indication: Lung neoplasm malignant
     Route: 042
     Dates: start: 20240124, end: 20240214
  4. OXAZEPAM [Concomitant]
     Active Substance: OXAZEPAM
  5. ELIQUIS [Concomitant]
     Active Substance: APIXABAN
  6. SINGULAIR [Concomitant]
     Active Substance: MONTELUKAST SODIUM
  7. XGEVA [Concomitant]
     Active Substance: DENOSUMAB
  8. BECLOMETHASONE DIPROPIONATE\FORMOTEROL FUMARATE\GLYCOPYRROLATE [Concomitant]
     Active Substance: BECLOMETHASONE DIPROPIONATE\FORMOTEROL FUMARATE\GLYCOPYRROLATE

REACTIONS (2)
  - Cholestasis [Recovering/Resolving]
  - Intentional product use issue [Unknown]

NARRATIVE: CASE EVENT DATE: 20240219
